FAERS Safety Report 13008212 (Version 1)
Quarter: 2016Q4

REPORT INFORMATION
  Report Type: Spontaneous
  Country: US (occurrence: US)
  Receive Date: 20161208
  Receipt Date: 20161208
  Transmission Date: 20170207
  Serious: Yes (Death, Hospitalization, Disabling, Other)
  Sender: FDA-Public Use
  Company Number: US-TEVA-661383USA

PATIENT
  Age: 68 Year
  Sex: Male

DRUGS (1)
  1. AMIODARONE [Suspect]
     Active Substance: AMIODARONE
     Dosage: 800 MILLIGRAM DAILY;

REACTIONS (17)
  - Product use issue [Unknown]
  - Wheezing [Unknown]
  - Asthenia [Unknown]
  - Irritability [Unknown]
  - Pulmonary toxicity [Unknown]
  - Fatigue [Unknown]
  - Restlessness [Unknown]
  - Fall [Unknown]
  - Pulmonary fibrosis [Unknown]
  - Cough [Unknown]
  - Depression [Unknown]
  - Toxicity to various agents [Fatal]
  - Nervousness [Unknown]
  - Dyspnoea [Unknown]
  - Disturbance in attention [Unknown]
  - Lung disorder [Unknown]
  - Muscular weakness [Unknown]
